FAERS Safety Report 5363123-9 (Version None)
Quarter: 2007Q2

REPORT INFORMATION
  Report Type: 
  Country: None (occurrence: None)
  Receive Date: 20070618
  Receipt Date: 20070611
  Transmission Date: 20071010
  Serious: Yes (Hospitalization)
  Sender: FDA-Public Use
  Company Number: 2007SP011611

PATIENT
  Age: 60 Year
  Sex: Male

DRUGS (17)
  1. INTRON A [Suspect]
     Indication: MALIGNANT MELANOMA
     Dosage: 45 MIU; IV
     Route: 042
     Dates: start: 20070604, end: 20070606
  2. VYTORIN (EZETIMIBE/ SIMVASTATIN) (CON.) [Concomitant]
  3. VITAMIN C (CON.) [Concomitant]
  4. AVAPRO (CON.) [Concomitant]
  5. HYDROCHLOROTHIAZIDE (CON.) [Concomitant]
  6. ACTOS (CON.) [Concomitant]
  7. CALCIUM WITH VITAMIN D (CON.) [Concomitant]
  8. METFORMIN (CON.) [Concomitant]
  9. ATENOLOL (CON.) [Concomitant]
  10. PRILOSEC /00661201/ (CON.) [Concomitant]
  11. CENTRUM SILVER (CON.) [Concomitant]
  12. ASPIRIN /00002701/ (CON.) [Concomitant]
  13. BYETTA (CON.) [Concomitant]
  14. AMARYL (CON.) [Concomitant]
  15. COMPAZINE /00013302/ (CON.) [Concomitant]
  16. LEXAPRO (CON.) [Concomitant]
  17. ZOFRAN /00955301/ (CON.) [Concomitant]

REACTIONS (5)
  - DRUG INEFFECTIVE [None]
  - FATIGUE [None]
  - HEADACHE [None]
  - PULMONARY OEDEMA [None]
  - WEIGHT INCREASED [None]
